FAERS Safety Report 5744999-X (Version None)
Quarter: 2008Q2

REPORT INFORMATION
  Report Type: 
  Country: None (occurrence: None)
  Receive Date: 20080521
  Receipt Date: 20080513
  Transmission Date: 20081010
  Serious: Yes (Other)
  Sender: FDA-Public Use
  Company Number: CH-ELI_LILLY_AND_COMPANY-CH200805002614

PATIENT
  Age: 74 Year
  Sex: Female

DRUGS (6)
  1. ZYPREXA [Suspect]
     Indication: BIPOLAR DISORDER
     Dosage: 5 MG, DAILY (1/D)
     Route: 048
     Dates: start: 20060101
  2. DEPAKENE [Concomitant]
     Dosage: 1080 MG, DAILY (1/D)
     Route: 048
     Dates: start: 20070601, end: 20080423
  3. SEROQUEL [Concomitant]
     Dosage: 100 MG, DAILY (1/D)
     Route: 048
     Dates: start: 20070215
  4. ENATEC [Concomitant]
     Indication: ESSENTIAL HYPERTENSION
     Dosage: 5 MG, DAILY (1/D)
     Route: 048
     Dates: start: 20040101
  5. METFIN [Concomitant]
     Indication: GLUCOSE TOLERANCE TEST ABNORMAL
     Dosage: 850 MG, DAILY (1/D)
     Route: 048
     Dates: start: 20070101
  6. DISTRANEURIN [Concomitant]
     Dosage: 192 MG, DAILY (1/D)

REACTIONS (1)
  - THROMBOCYTOPENIA [None]
